FAERS Safety Report 9973427 (Version 1)
Quarter: 2014Q1

REPORT INFORMATION
  Report Type: Spontaneous
  Country: US (occurrence: US)
  Receive Date: 20140306
  Receipt Date: 20140306
  Transmission Date: 20141002
  Serious: Yes (Hospitalization, Other)
  Sender: FDA-Public Use
  Company Number: US-AMGEN-USASP2014014377

PATIENT
  Age: 68 Year
  Sex: Female

DRUGS (9)
  1. PROLIA [Suspect]
     Indication: OSTEOPOROSIS POSTMENOPAUSAL
     Route: 065
  2. GABAPENTIN [Concomitant]
  3. MIRAPEX [Concomitant]
  4. LYRICA [Concomitant]
  5. TIZANIDINE [Concomitant]
  6. PANTOPRAZOLE [Concomitant]
     Dosage: 40 MG, BID
  7. POSTURE D                          /00207901/ [Concomitant]
  8. LOSARTAN [Concomitant]
     Dosage: 50 MG, UNK
  9. DIGOXIN [Concomitant]
     Dosage: 125 MG, UNK

REACTIONS (15)
  - Ovarian cancer [Unknown]
  - Transfusion [Unknown]
  - Weight decreased [Unknown]
  - Fluid overload [Unknown]
  - Body height decreased [Unknown]
  - Memory impairment [Recovering/Resolving]
  - Procedural pain [Unknown]
  - Restless legs syndrome [Unknown]
  - Alopecia [Recovering/Resolving]
  - Onychomadesis [Unknown]
  - Anxiety [Not Recovered/Not Resolved]
  - Arthritis [Unknown]
  - Blood glucose decreased [Unknown]
  - Malaise [Unknown]
  - Pain in extremity [Unknown]
